FAERS Safety Report 6537243-7 (Version None)
Quarter: 2010Q1

REPORT INFORMATION
  Report Type: 
  Country: None (occurrence: None)
  Receive Date: 20100114
  Receipt Date: 20100112
  Transmission Date: 20100710
  Serious: Yes (Hospitalization)
  Sender: FDA-Public Use
  Company Number: AT-ROCHE-679028

PATIENT
  Sex: Female
  Weight: 89 kg

DRUGS (6)
  1. CAPECITABINE [Suspect]
     Indication: COLON CANCER
     Dosage: INTERRUPTED.
     Route: 048
  2. BEVACIZUMAB [Suspect]
     Indication: COLON CANCER
     Dosage: TEMPORARILY INTERRUPTED. FREQUENCY: INFUSION ONCE EVERY 3 WEEKS.
     Route: 042
  3. AMLODIPINE [Concomitant]
     Indication: HYPERTENSION
  4. RAMICOMP [Concomitant]
     Indication: HYPERTENSION
  5. GLUCOPHAGE [Concomitant]
     Indication: DIABETES MELLITUS
  6. EUCREAS [Concomitant]
     Indication: DIABETES MELLITUS

REACTIONS (1)
  - PROTEINURIA [None]
